FAERS Safety Report 24042362 (Version 1)
Quarter: 2024Q3

REPORT INFORMATION
  Report Type: Spontaneous
  Country: FR (occurrence: FR)
  Receive Date: 20240702
  Receipt Date: 20240702
  Transmission Date: 20241016
  Serious: Yes (Hospitalization)
  Sender: BAUSCH AND LOMB
  Company Number: None

PATIENT
  Age: 49 Year
  Sex: Female
  Weight: 89 kg

DRUGS (6)
  1. METFORMIN HYDROCHLORIDE [Suspect]
     Active Substance: METFORMIN HYDROCHLORIDE
     Indication: Diabetes mellitus
     Route: 048
     Dates: start: 202404, end: 20240530
  2. HYDROCHLOROTHIAZIDE [Suspect]
     Active Substance: HYDROCHLOROTHIAZIDE
     Indication: Hypertension
     Route: 048
     Dates: end: 20240530
  3. ATARAX [Suspect]
     Active Substance: HYDROXYZINE HYDROCHLORIDE
     Indication: Product used for unknown indication
     Route: 048
     Dates: start: 202404, end: 20240530
  4. NEBIVOLOL [Suspect]
     Active Substance: NEBIVOLOL
     Indication: Hypertension
     Route: 048
     Dates: end: 20240530
  5. BACTRIM [Suspect]
     Active Substance: SULFAMETHOXAZOLE\TRIMETHOPRIM
     Indication: Klebsiella bacteraemia
     Route: 048
     Dates: start: 20240513, end: 20240530
  6. SITAGLIPTIN [Concomitant]
     Active Substance: SITAGLIPTIN
     Indication: Diabetes mellitus
     Route: 048
     Dates: end: 20240530

REACTIONS (1)
  - Organising pneumonia [Recovering/Resolving]

NARRATIVE: CASE EVENT DATE: 20240525
